FAERS Safety Report 23879509 (Version 1)
Quarter: 2024Q2

REPORT INFORMATION
  Report Type: Spontaneous
  Country: US (occurrence: US)
  Receive Date: 20240521
  Receipt Date: 20240521
  Transmission Date: 20240716
  Serious: Yes (Other)
  Sender: FDA-Public Use
  Company Number: US-OTSUKA-2024_014285

PATIENT
  Sex: Male

DRUGS (15)
  1. BUSULFAN [Suspect]
     Active Substance: BUSULFAN
     Indication: Combined immunodeficiency
     Dosage: UNK (AUC 50)
     Route: 065
  2. BUSULFAN [Suspect]
     Active Substance: BUSULFAN
     Indication: Glutaric acidaemia type I
  3. BUSULFAN [Suspect]
     Active Substance: BUSULFAN
     Indication: Combined immunodeficiency
  4. BUSULFAN [Suspect]
     Active Substance: BUSULFAN
     Indication: Stem cell transplant
  5. BUSULFAN [Suspect]
     Active Substance: BUSULFAN
     Indication: Bone marrow conditioning regimen
  6. FLUDARABINE [Suspect]
     Active Substance: FLUDARABINE PHOSPHATE
     Indication: Combined immunodeficiency
     Dosage: UNK
     Route: 065
  7. FLUDARABINE [Suspect]
     Active Substance: FLUDARABINE PHOSPHATE
     Indication: Glutaric acidaemia type I
  8. FLUDARABINE [Suspect]
     Active Substance: FLUDARABINE PHOSPHATE
     Indication: Combined immunodeficiency
  9. FLUDARABINE [Suspect]
     Active Substance: FLUDARABINE PHOSPHATE
     Indication: Stem cell transplant
  10. FLUDARABINE [Suspect]
     Active Substance: FLUDARABINE PHOSPHATE
     Indication: Bone marrow conditioning regimen
  11. CAMPATH [Suspect]
     Active Substance: ALEMTUZUMAB
     Indication: Combined immunodeficiency
     Dosage: UNK
     Route: 065
  12. CAMPATH [Suspect]
     Active Substance: ALEMTUZUMAB
     Indication: Glutaric acidaemia type I
  13. CAMPATH [Suspect]
     Active Substance: ALEMTUZUMAB
     Indication: Combined immunodeficiency
  14. CAMPATH [Suspect]
     Active Substance: ALEMTUZUMAB
     Indication: Bone marrow conditioning regimen
  15. CAMPATH [Suspect]
     Active Substance: ALEMTUZUMAB
     Indication: Stem cell transplant

REACTIONS (2)
  - Adenovirus reactivation [Recovered/Resolved]
  - Drug effective for unapproved indication [Unknown]
